FAERS Safety Report 19297466 (Version 1)
Quarter: 2021Q2

REPORT INFORMATION
  Report Type: Spontaneous
  Country: GB (occurrence: GB)
  Receive Date: 20210524
  Receipt Date: 20210524
  Transmission Date: 20210717
  Serious: Yes (Other)
  Sender: FDA-Public Use
  Company Number: GB-AUROBINDO-AUR-APL-2021-021081

PATIENT
  Age: 74 Year
  Sex: Male

DRUGS (8)
  1. GLUCOPHAGE [Concomitant]
     Active Substance: METFORMIN HYDROCHLORIDE
     Indication: ILL-DEFINED DISORDER
     Dosage: UNK
     Route: 065
  2. ATORVASTATIN [Concomitant]
     Active Substance: ATORVASTATIN
     Indication: ILL-DEFINED DISORDER
     Dosage: UNK
     Route: 065
  3. CARDICOR [Concomitant]
     Active Substance: BISOPROLOL
     Indication: ILL-DEFINED DISORDER
     Dosage: UNK
     Route: 065
  4. GLYCERYL TRINITRATE [Concomitant]
     Active Substance: NITROGLYCERIN
     Indication: ILL-DEFINED DISORDER
     Dosage: UNK
     Route: 065
  5. MONOMIL XL [Concomitant]
     Active Substance: ISOSORBIDE MONONITRATE
     Indication: ILL-DEFINED DISORDER
     Dosage: UNK
     Route: 065
  6. DONEPEZIL. [Suspect]
     Active Substance: DONEPEZIL
     Indication: DEMENTIA ALZHEIMER^S TYPE
     Dosage: 5 MILLIGRAM
     Route: 048
     Dates: start: 20210510, end: 20210514
  7. ASPIRIN. [Concomitant]
     Active Substance: ASPIRIN
     Indication: ILL-DEFINED DISORDER
     Dosage: UNK
     Route: 065
  8. LOSARTAN. [Concomitant]
     Active Substance: LOSARTAN
     Indication: ILL-DEFINED DISORDER
     Dosage: UNK
     Route: 065

REACTIONS (3)
  - Agitation [Recovering/Resolving]
  - Confusional state [Recovering/Resolving]
  - Suicidal ideation [Recovering/Resolving]

NARRATIVE: CASE EVENT DATE: 20210510
